FAERS Safety Report 17248065 (Version 1)
Quarter: 2020Q1

REPORT INFORMATION
  Report Type: Spontaneous
  Country: IT (occurrence: IT)
  Receive Date: 20200108
  Receipt Date: 20200108
  Transmission Date: 20200409
  Serious: Yes (Hospitalization)
  Sender: FDA-Public Use
  Company Number: IT-SAMSUNG BIOEPIS-SB-2019-40467

PATIENT
  Age: 80 Year
  Sex: Female

DRUGS (2)
  1. ONTRUZANT [Suspect]
     Active Substance: TRASTUZUMAB-DTTB
     Indication: BREAST CANCER
     Route: 042
     Dates: start: 20190627, end: 20190627
  2. FEMARA [Concomitant]
     Active Substance: LETROZOLE
     Indication: PRODUCT USED FOR UNKNOWN INDICATION
     Route: 048

REACTIONS (3)
  - Rash maculo-papular [Recovered/Resolved]
  - Skin reaction [Recovered/Resolved]
  - Asthenia [Recovered/Resolved]

NARRATIVE: CASE EVENT DATE: 20190705
